FAERS Safety Report 20233875 (Version 2)
Quarter: 2022Q1

REPORT INFORMATION
  Report Type: Spontaneous
  Country: US (occurrence: US)
  Receive Date: 20211227
  Receipt Date: 20220111
  Transmission Date: 20220423
  Serious: Yes (Other)
  Sender: FDA-Public Use
  Company Number: US-CELGENE-USA-20211206556

PATIENT
  Sex: Male
  Weight: 87.168 kg

DRUGS (2)
  1. REVLIMID [Suspect]
     Active Substance: LENALIDOMIDE
     Indication: Plasma cell myeloma
     Dosage: 25 MILLIGRAM
     Route: 048
     Dates: start: 202010
  2. ASPIRIN [Suspect]
     Active Substance: ASPIRIN
     Indication: Thrombosis prophylaxis
     Dosage: 325 MILLIGRAM
     Route: 065

REACTIONS (1)
  - Haemorrhage [Recovered/Resolved]
